FAERS Safety Report 16720486 (Version 1)
Quarter: 2019Q3

REPORT INFORMATION
  Report Type: Spontaneous
  Country: CA (occurrence: CA)
  Receive Date: 20190820
  Receipt Date: 20190820
  Transmission Date: 20191005
  Serious: Yes (Disabling)
  Sender: FDA-Public Use
  Company Number: CA-ALLERGAN-1933498US

PATIENT
  Sex: Male
  Weight: 81 kg

DRUGS (6)
  1. TAFINLAR [Interacting]
     Active Substance: DABRAFENIB MESYLATE
     Indication: ADJUVANT THERAPY
     Dosage: 75 MG, Q12H
     Route: 048
  2. CITALOPRAM HYDROBROMIDE - BP [Suspect]
     Active Substance: CITALOPRAM HYDROBROMIDE
     Indication: DEPRESSION
     Dosage: 20 MG, QD
     Route: 048
  3. CITALOPRAM HYDROBROMIDE - BP [Interacting]
     Active Substance: CITALOPRAM HYDROBROMIDE
     Dosage: 10 MG, QD
     Route: 048
  4. MEKINIST [Interacting]
     Active Substance: TRAMETINIB DIMETHYL SULFOXIDE
     Indication: SKIN NEOPLASM EXCISION
     Dosage: 1 MG, QD
     Route: 048
  5. MEKINIST [Interacting]
     Active Substance: TRAMETINIB DIMETHYL SULFOXIDE
     Indication: ADJUVANT THERAPY
     Dosage: 1 MG, QD
     Route: 048
  6. TAFINLAR [Interacting]
     Active Substance: DABRAFENIB MESYLATE
     Indication: SKIN NEOPLASM EXCISION
     Dosage: 75 MG, Q12H
     Route: 048

REACTIONS (4)
  - Peripheral swelling [Recovering/Resolving]
  - Drug interaction [Recovering/Resolving]
  - Erythema nodosum [Recovering/Resolving]
  - Headache [Recovering/Resolving]
